FAERS Safety Report 4870682-9 (Version None)
Quarter: 2005Q4

REPORT INFORMATION
  Report Type: 
  Country: None (occurrence: None)
  Receive Date: 20051228
  Receipt Date: 20051221
  Transmission Date: 20060501
  Serious: Yes (Other)
  Sender: FDA-Public Use
  Company Number: 2005-CZ-01512

PATIENT
  Age: 62 Year
  Sex: Female

DRUGS (3)
  1. METFORMIN TABLETS BP 500 MG(METFORMIN) [Suspect]
     Dosage: 500 MG
  2. LISINOPRIL [Suspect]
     Indication: AORTIC DISORDER
     Dosage: 15 MG, ORAL
     Route: 048
     Dates: start: 19980101
  3. WARFARIN SODIUM [Concomitant]

REACTIONS (8)
  - BLINDNESS [None]
  - BLOOD PRESSURE INCREASED [None]
  - DIARRHOEA [None]
  - DIZZINESS [None]
  - FEELING ABNORMAL [None]
  - MIGRAINE [None]
  - PAIN [None]
  - PHOTOPSIA [None]
